FAERS Safety Report 5584463-4 (Version None)
Quarter: 2008Q1

REPORT INFORMATION
  Report Type: 
  Country: None (occurrence: None)
  Receive Date: 20080108
  Receipt Date: 20071231
  Transmission Date: 20080703
  Serious: Yes (Hospitalization)
  Sender: FDA-Public Use
  Company Number: US-ELI_LILLY_AND_COMPANY-US200711005132

PATIENT
  Age: 74 Year
  Sex: Female
  Weight: 39.909 kg

DRUGS (10)
  1. FORTEO [Suspect]
     Indication: GASTRECTOMY
     Dosage: 20 UG, DAILY (1/D)
     Dates: start: 20061030
  2. LANTUS [Concomitant]
  3. LISINOPRIL [Concomitant]
  4. PLAVIX [Concomitant]
  5. ECOTRIN [Concomitant]
  6. COREG [Concomitant]
  7. GLYSET [Concomitant]
  8. VITAMIN B-12 [Concomitant]
  9. LIDODERM [Concomitant]
  10. MEGACE [Concomitant]

REACTIONS (1)
  - OSTEOPOROTIC FRACTURE [None]
